FAERS Safety Report 12874417 (Version 1)
Quarter: 2016Q4

REPORT INFORMATION
  Report Type: Spontaneous
  Country: CA (occurrence: CA)
  Receive Date: 20161021
  Receipt Date: 20161021
  Transmission Date: 20170207
  Serious: Yes (Death, Hospitalization)
  Sender: FDA-Public Use
  Company Number: CA-ACTELION-A-US2016-142085

PATIENT
  Age: 45 Year
  Sex: Female

DRUGS (24)
  1. UPTRAVI [Suspect]
     Active Substance: SELEXIPAG
     Indication: PULMONARY ARTERIAL HYPERTENSION
     Dosage: 1200 MCG, BID
     Route: 048
  2. TRACLEER [Concomitant]
     Active Substance: BOSENTAN
  3. FUROSEMIDE. [Concomitant]
     Active Substance: FUROSEMIDE
  4. UPTRAVI [Suspect]
     Active Substance: SELEXIPAG
     Dosage: UNK MCG, UNK
     Route: 048
     Dates: start: 20160808
  5. TYLENOL [Concomitant]
     Active Substance: ACETAMINOPHEN
     Dosage: 325 MG, PRN
  6. POTASSIUM CHLORIDE. [Concomitant]
     Active Substance: POTASSIUM CHLORIDE
  7. TRACLEER [Concomitant]
     Active Substance: BOSENTAN
  8. RANITIDINE. [Concomitant]
     Active Substance: RANITIDINE
  9. FERROUS SULFATE. [Concomitant]
     Active Substance: FERROUS SULFATE
  10. FLOVENT [Concomitant]
     Active Substance: FLUTICASONE PROPIONATE
     Dosage: UNK, BID
  11. BENZAC [Concomitant]
     Active Substance: SALICYLIC ACID
     Indication: RASH
  12. OLANZAPINE. [Concomitant]
     Active Substance: OLANZAPINE
  13. SPIRONOLACTONE. [Concomitant]
     Active Substance: SPIRONOLACTONE
  14. ALMAGEL PLUS [Concomitant]
     Dosage: UNK, PRN
  15. ADCIRCA [Concomitant]
     Active Substance: TADALAFIL
  16. TOPIDERM HC [Concomitant]
  17. CITALOPRAM [Concomitant]
     Active Substance: CITALOPRAM HYDROBROMIDE
  18. RAMIPRIL. [Concomitant]
     Active Substance: RAMIPRIL
  19. BECLOMETHASONE [Concomitant]
     Active Substance: BECLOMETHASONE
     Dosage: UNK, PRN
     Route: 045
  20. UPTRAVI [Suspect]
     Active Substance: SELEXIPAG
     Dosage: 600 MCG, BID
     Route: 048
  21. UPTRAVI [Suspect]
     Active Substance: SELEXIPAG
     Dosage: 400 MCG, BID
     Route: 048
  22. SALBUTAMOL [Concomitant]
     Active Substance: ALBUTEROL
     Dosage: UNK, PRN
  23. ROBITUSSIN (GUAIFENESIN) [Concomitant]
     Active Substance: GUAIFENESIN
     Dosage: UNK, PRN
  24. DULCOLAX NOS [Concomitant]
     Active Substance: BISACODYL OR DOCUSATE SODIUM

REACTIONS (6)
  - Nausea [Not Recovered/Not Resolved]
  - Right ventricular failure [Fatal]
  - Tachycardia [Not Recovered/Not Resolved]
  - Malaise [Not Recovered/Not Resolved]
  - Arthralgia [Not Recovered/Not Resolved]
  - Pain [Not Recovered/Not Resolved]

NARRATIVE: CASE EVENT DATE: 20160906
